FAERS Safety Report 13159463 (Version 1)
Quarter: 2017Q1

REPORT INFORMATION
  Report Type: Spontaneous
  Country: US (occurrence: US)
  Receive Date: 20170127
  Receipt Date: 20170127
  Transmission Date: 20170509
  Serious: Yes (Other)
  Sender: FDA-Public Use
  Company Number: US-BAYER-2017-015573

PATIENT
  Age: 10 Year
  Sex: Male

DRUGS (5)
  1. FLAGYL [Suspect]
     Active Substance: METRONIDAZOLE\METRONIDAZOLE HYDROCHLORIDE
     Indication: ANAL ABSCESS
  2. HUMIRA [Suspect]
     Active Substance: ADALIMUMAB
     Indication: CROHN^S DISEASE
     Dosage: 40 UNK, UNK
     Route: 058
     Dates: start: 20160301, end: 20160301
  3. CIPRO [Suspect]
     Active Substance: CIPROFLOXACIN HYDROCHLORIDE
     Indication: ANAL ABSCESS
     Dosage: UNK
     Dates: start: 2016
  4. HUMIRA [Suspect]
     Active Substance: ADALIMUMAB
     Indication: CROHN^S DISEASE
     Dosage: 40 UNK, UNK
     Route: 058
     Dates: start: 20160315, end: 20160315
  5. HUMIRA [Suspect]
     Active Substance: ADALIMUMAB
     Indication: CROHN^S DISEASE
     Dosage: 20 MG, UNK
     Route: 058
     Dates: start: 201603

REACTIONS (15)
  - Abdominal pain upper [None]
  - Headache [Recovering/Resolving]
  - Anxiety [None]
  - Head discomfort [None]
  - Injection site pain [None]
  - Abdominal pain [None]
  - Depressed mood [None]
  - Strabismus [None]
  - Malaise [None]
  - Weight increased [None]
  - Pain [None]
  - Diarrhoea [Recovering/Resolving]
  - Decreased appetite [Not Recovered/Not Resolved]
  - Wound infection [Recovered/Resolved]
  - Nausea [None]

NARRATIVE: CASE EVENT DATE: 2016
